FAERS Safety Report 5305949-3 (Version None)
Quarter: 2007Q2

REPORT INFORMATION
  Report Type: 
  Country: None (occurrence: None)
  Receive Date: 20070424
  Receipt Date: 20070413
  Transmission Date: 20071010
  Serious: Yes (Life-Threatening, Hospitalization)
  Sender: FDA-Public Use
  Company Number: FR-JNJFOC-20070203426

PATIENT
  Sex: Female
  Weight: 95 kg

DRUGS (8)
  1. DURAGESIC-100 [Suspect]
     Indication: PAIN
     Route: 062
  2. TARDYFERON [Concomitant]
     Indication: IRON DEFICIENCY ANAEMIA
  3. SOLUPRED [Concomitant]
     Indication: CHRONIC RESPIRATORY FAILURE
  4. NITRODERM [Concomitant]
     Indication: CARDIAC FAILURE
  5. MOTILIUM [Concomitant]
     Indication: GASTROINTESTINAL DISORDER
  6. PARIET [Concomitant]
     Indication: GASTROINTESTINAL DISORDER THERAPY
  7. FUROSEMIDE [Concomitant]
     Indication: CARDIAC FAILURE
  8. IRBESARTAN [Concomitant]
     Indication: HYPERTENSION

REACTIONS (8)
  - DRUG EFFECT INCREASED [None]
  - LOSS OF CONSCIOUSNESS [None]
  - LUNG INFECTION [None]
  - PYREXIA [None]
  - RESPIRATION ABNORMAL [None]
  - RESPIRATORY DEPRESSION [None]
  - SEPSIS [None]
  - TACHYPNOEA [None]
